FAERS Safety Report 10264612 (Version 2)
Quarter: 2014Q2

REPORT INFORMATION
  Report Type: Spontaneous
  Country: IT (occurrence: IT)
  Receive Date: 20140627
  Receipt Date: 20140627
  Transmission Date: 20141212
  Serious: Yes (Other)
  Sender: FDA-Public Use
  Company Number: PHHY2014IT071363

PATIENT
  Age: 57 Year
  Sex: Male

DRUGS (6)
  1. DICLOFENAC [Suspect]
     Indication: BACK PAIN
     Dosage: 3 DF, TOTAL
     Route: 048
     Dates: start: 20140106, end: 20140107
  2. SEACOR [Concomitant]
     Dosage: UNK UKN, UNK
     Route: 048
  3. CARDIOASPIRIN [Concomitant]
     Dosage: UNK UKN, UNK
     Route: 048
  4. LOBIVON [Concomitant]
     Dosage: UNK UKN, UNK
     Route: 048
  5. TRIATEC [Concomitant]
     Dosage: UNK UKN, UNK
     Route: 048
  6. ATORVASTATIN [Concomitant]
     Dosage: UNK UKN, UNK
     Route: 048

REACTIONS (3)
  - Cold sweat [Recovering/Resolving]
  - Abdominal pain [Recovering/Resolving]
  - Haematochezia [Recovering/Resolving]
